FAERS Safety Report 10550506 (Version 2)
Quarter: 2014Q4

REPORT INFORMATION
  Report Type: Spontaneous
  Country: US (occurrence: US)
  Receive Date: 20141029
  Receipt Date: 20141029
  Transmission Date: 20150529
  Serious: No
  Sender: FDA-Public Use
  Company Number: US-TEVA-495871USA

PATIENT
  Age: 45 Year
  Sex: Female
  Weight: 44.49 kg

DRUGS (4)
  1. CARBAMAZEPINE. [Concomitant]
     Active Substance: CARBAMAZEPINE
     Indication: TRIGEMINAL NEURALGIA
  2. CITALOPRAM [Concomitant]
     Active Substance: CITALOPRAM HYDROBROMIDE
     Indication: TRIGEMINAL NEURALGIA
  3. PROVIGIL [Suspect]
     Active Substance: MODAFINIL
     Dates: start: 201402
  4. PROVIGIL [Suspect]
     Active Substance: MODAFINIL
     Indication: ASTHENIA
     Dosage: 1/2 OF 200 MG TABLET
     Dates: start: 2011

REACTIONS (2)
  - Product use issue [Unknown]
  - Drug ineffective [Unknown]

NARRATIVE: CASE EVENT DATE: 201402
